FAERS Safety Report 7952429-2 (Version None)
Quarter: 2011Q4

REPORT INFORMATION
  Report Type: 
  Country: None (occurrence: None)
  Receive Date: 20111201
  Receipt Date: 20111123
  Transmission Date: 20120403
  Serious: Yes (Other)
  Sender: FDA-Public Use
  Company Number: DE-GLAXOSMITHKLINE-B0696674A

PATIENT
  Age: 68 Year
  Sex: Female
  Weight: 64 kg

DRUGS (10)
  1. MELPHALAN HYDROCHLORIDE [Suspect]
     Indication: MULTIPLE MYELOMA
     Dosage: 9MG PER DAY
     Route: 065
     Dates: start: 20100201, end: 20100701
  2. PREDNISONE TAB [Concomitant]
     Indication: MULTIPLE MYELOMA
  3. REVLIMID [Suspect]
     Indication: MULTIPLE MYELOMA
     Dosage: 15MG SEE DOSAGE TEXT
     Route: 048
     Dates: start: 20100201, end: 20100701
  4. SULFAMETHOXAZOLE AND TRIMETHOPRIM DOUBLE STRENGTH [Suspect]
     Indication: ANTIFUNGAL PROPHYLAXIS
     Route: 065
  5. ACETYLSALICYLIC ACID SRT [Concomitant]
     Indication: THROMBOSIS PROPHYLAXIS
     Dosage: 100MG PER DAY
     Route: 065
  6. DEXAMETHASONE [Suspect]
     Dosage: 20MG SEE DOSAGE TEXT
     Route: 065
     Dates: start: 20100201, end: 20100701
  7. TEMAZEPAM [Concomitant]
     Indication: INSOMNIA
     Dosage: 20MG PER DAY
     Route: 065
  8. VELCADE [Suspect]
     Indication: MULTIPLE MYELOMA
     Dosage: 1.7MG SEE DOSAGE TEXT
     Route: 065
     Dates: start: 20100201, end: 20100701
  9. CONCOR [Concomitant]
     Indication: HYPERTENSION
     Dosage: 5MG TWICE PER DAY
     Route: 065
  10. ACYCLOVIR [Concomitant]
     Indication: PROPHYLAXIS
     Dosage: 1600MG TWICE PER DAY
     Route: 065

REACTIONS (7)
  - PRODUCT QUALITY ISSUE [None]
  - FATIGUE [None]
  - PANCYTOPENIA [None]
  - NEUTROPENIA [None]
  - MULTIPLE MYELOMA [None]
  - DRUG INEFFECTIVE [None]
  - NO THERAPEUTIC RESPONSE [None]
